FAERS Safety Report 9053350 (Version 3)
Quarter: 2013Q2

REPORT INFORMATION
  Report Type: Report from Study
  Country: CA (occurrence: CA)
  Receive Date: 20130207
  Receipt Date: 20130408
  Transmission Date: 20140414
  Serious: Yes (Hospitalization, Other)
  Sender: FDA-Public Use
  Company Number: CA-BAYER-2013-016307

PATIENT
  Age: 42 Year
  Sex: Male

DRUGS (5)
  1. BETASERON [Suspect]
     Indication: MULTIPLE SCLEROSIS
     Dosage: 8 MIU, QOD
     Route: 058
     Dates: start: 200612
  2. BETASERON [Suspect]
     Indication: MULTIPLE SCLEROSIS
     Dosage: UNK
     Route: 058
     Dates: start: 20070901, end: 20130315
  3. FLUOXETINE [Concomitant]
  4. BACLOFEN [Concomitant]
     Dosage: 10 MG, BID
     Route: 048
  5. MULTIVITAMIN [Concomitant]

REACTIONS (8)
  - Injection site cellulitis [Recovered/Resolved]
  - Abasia [Recovering/Resolving]
  - Pain in extremity [Recovered/Resolved]
  - Pyrexia [Recovered/Resolved]
  - Injection site inflammation [Recovered/Resolved]
  - Tremor [Recovering/Resolving]
  - Abasia [None]
  - Coordination abnormal [None]
